APPROVED DRUG PRODUCT: TESTOSTERONE
Active Ingredient: TESTOSTERONE
Strength: 1.62% (20.25MG/1.25GM ACTUATION)
Dosage Form/Route: GEL, METERED;TRANSDERMAL
Application: A213922 | Product #001
Applicant: ALEMBIC PHARMACEUTICALS LTD
Approved: Mar 3, 2021 | RLD: No | RS: No | Type: DISCN